FAERS Safety Report 7540588-5 (Version None)
Quarter: 2011Q2

REPORT INFORMATION
  Report Type: 
  Country: None (occurrence: None)
  Receive Date: 20110610
  Receipt Date: 20110608
  Transmission Date: 20111010
  Serious: Yes (Hospitalization)
  Sender: FDA-Public Use
  Company Number: Z0004315A

PATIENT
  Sex: Female
  Weight: 47 kg

DRUGS (1)
  1. CHLORAMBUCIL [Suspect]
     Route: 048
     Dates: start: 20100316

REACTIONS (1)
  - GASTROENTERITIS [None]
